FAERS Safety Report 9364452 (Version 1)
Quarter: 2013Q2

REPORT INFORMATION
  Report Type: Report from Study
  Country: US (occurrence: US)
  Receive Date: 20130624
  Receipt Date: 20130624
  Transmission Date: 20140414
  Serious: Yes (Hospitalization)
  Sender: FDA-Public Use
  Company Number: US-NAPPMUNDI-USA-2013-0103730

PATIENT
  Sex: Male

DRUGS (2)
  1. OXYCONTIN (NDA 22-272) [Suspect]
     Indication: MULTIPLE SCLEROSIS
     Dosage: 80 MG, Q8H
     Route: 048
     Dates: start: 200902
  2. OXYCONTIN (NDA 22-272) [Suspect]
     Dosage: 30 MG, Q8H
     Route: 048
     Dates: start: 201011

REACTIONS (1)
  - Myocardial infarction [Unknown]
